FAERS Safety Report 4767636-X (Version None)
Quarter: 2005Q3

REPORT INFORMATION
  Report Type: 
  Country: None (occurrence: None)
  Receive Date: 20050909
  Receipt Date: 20050824
  Transmission Date: 20060218
  Serious: Yes (Life-Threatening, Hospitalization)
  Sender: FDA-Public Use
  Company Number: DSA_60502_2005

PATIENT
  Age: 39 Year
  Sex: Female
  Weight: 78.9259 kg

DRUGS (6)
  1. DIASTAT [Suspect]
     Indication: CONVULSION
     Dosage: 60 MG ONCE
     Dates: start: 20050601
  2. DIASTAT [Suspect]
     Indication: CONVULSION
     Dosage: 20 MG PRN RC
     Route: 054
     Dates: start: 20050101
  3. TEMODAR [Concomitant]
  4. DEPAKOTE [Concomitant]
  5. DECADRON [Concomitant]
  6. AVALIDE [Concomitant]

REACTIONS (4)
  - ACCIDENTAL OVERDOSE [None]
  - RESPIRATORY ARREST [None]
  - RESPIRATORY DEPRESSION [None]
  - SELF-MEDICATION [None]
